FAERS Safety Report 9994827 (Version 2)
Quarter: 2014Q1

REPORT INFORMATION
  Report Type: Spontaneous
  Country: US (occurrence: US)
  Receive Date: 20140311
  Receipt Date: 20140311
  Transmission Date: 20141002
  Serious: Yes (Disabling, Other)
  Sender: FDA-Public Use
  Company Number: US-SA-FABR-1002971

PATIENT
  Age: 31 Year
  Sex: Male

DRUGS (9)
  1. FABRAZYME [Suspect]
     Indication: FABRY^S DISEASE
     Dosage: UNK
     Route: 042
     Dates: start: 20111107, end: 201202
  2. FABRAZYME [Suspect]
     Indication: FABRY^S DISEASE
     Dosage: 90 MG, Q2W
     Route: 042
     Dates: start: 201207
  3. AMLODIPINE [Concomitant]
     Indication: HYPERTENSION
     Dates: start: 2010
  4. CALCIUM BICARBONATE [Concomitant]
     Indication: HYPOCALCAEMIA
     Dates: start: 2012
  5. CLONIDINE [Concomitant]
     Indication: HYPERTENSION
     Dates: start: 2012
  6. METOPROLOL [Concomitant]
     Indication: HYPERTENSION
     Dates: start: 2010
  7. CALCIUM ACETATE [Concomitant]
     Dosage: THREE TIMES PER DAY WITH MEALS
     Dates: start: 2012
  8. LORTAB [Concomitant]
     Indication: PAIN
     Dosage: 5/500; 1-2 TABLETS; EVERY 4-6 HOURS
     Dates: start: 2012
  9. VITAMIN D3 [Concomitant]
     Indication: VITAMIN D DEFICIENCY
     Dates: start: 2013

REACTIONS (1)
  - Renal impairment [Not Recovered/Not Resolved]
